FAERS Safety Report 5377591-X (Version None)
Quarter: 2007Q3

REPORT INFORMATION
  Report Type: 
  Country: None (occurrence: None)
  Receive Date: 20070703
  Receipt Date: 20070623
  Transmission Date: 20080115
  Serious: Yes (Hospitalization)
  Sender: FDA-Public Use
  Company Number: HK-SHR-HK-2007-023500

PATIENT
  Age: 46 Year
  Sex: Female

DRUGS (2)
  1. ULTRAVIST 300 [Suspect]
     Dosage: 100 ML, 1 DOSE
     Route: 042
     Dates: start: 20070528, end: 20070528
  2. HYDROCORTISON [Concomitant]
     Indication: PREMEDICATION
     Dosage: 100 MG, 1 DOSE
     Route: 042
     Dates: start: 20070528, end: 20070528

REACTIONS (6)
  - BLOOD PRESSURE DECREASED [None]
  - ERYTHEMA [None]
  - LOSS OF CONSCIOUSNESS [None]
  - PALPITATIONS [None]
  - SHOCK [None]
  - SWELLING [None]
